FAERS Safety Report 9105238 (Version 1)
Quarter: 2013Q1

REPORT INFORMATION
  Report Type: Spontaneous
  Country: US (occurrence: US)
  Receive Date: 20130220
  Receipt Date: 20130220
  Transmission Date: 20140127
  Serious: Yes (Hospitalization)
  Sender: FDA-Public Use
  Company Number: US-GLAXOSMITHKLINE-A1000624A

PATIENT
  Age: 69 Year
  Sex: Female

DRUGS (1)
  1. VOTRIENT [Suspect]
     Indication: BRONCHIAL CARCINOMA
     Dosage: 800MG PER DAY
     Route: 065

REACTIONS (2)
  - Hospitalisation [Unknown]
  - Vision blurred [Unknown]
